FAERS Safety Report 9717702 (Version 1)
Quarter: 2013Q4

REPORT INFORMATION
  Report Type: Spontaneous
  Country: US (occurrence: US)
  Receive Date: 20131127
  Receipt Date: 20131127
  Transmission Date: 20140711
  Serious: No
  Sender: FDA-Public Use
  Company Number: US-BANPHARM-20130945

PATIENT
  Sex: Female

DRUGS (1)
  1. ERGOCALCIFEROL (ERGOCALCIFEROL) [Suspect]
     Route: 048

REACTIONS (3)
  - Constipation [Not Recovered/Not Resolved]
  - Exposure to allergen [Unknown]
  - Reaction to drug excipients [Not Recovered/Not Resolved]
